FAERS Safety Report 13202096 (Version 1)
Quarter: 2017Q1

REPORT INFORMATION
  Report Type: Spontaneous
  Country: US (occurrence: US)
  Receive Date: 20170209
  Receipt Date: 20170209
  Transmission Date: 20170428
  Serious: No
  Sender: FDA-Public Use
  Company Number: US-BIOGEN-2017BI00353424

PATIENT
  Sex: Female

DRUGS (1)
  1. TECFIDERA [Suspect]
     Active Substance: DIMETHYL FUMARATE
     Indication: MULTIPLE SCLEROSIS
     Dates: start: 20151103

REACTIONS (4)
  - Drug dose omission [Recovered/Resolved]
  - Pruritus [Recovered/Resolved]
  - Memory impairment [Unknown]
  - Rash erythematous [Recovered/Resolved]
